FAERS Safety Report 8510292-5 (Version None)
Quarter: 2012Q3

REPORT INFORMATION
  Report Type: 
  Country: None (occurrence: None)
  Receive Date: 20120713
  Receipt Date: 20120706
  Transmission Date: 20120928
  Serious: Yes (Other)
  Sender: FDA-Public Use
  Company Number: DE-UCBSA-061193

PATIENT
  Sex: Female

DRUGS (1)
  1. CIMZIA [Suspect]
     Dosage: THE INJECTIONS  0.2.4 WERE WELL TOLERATED
     Dates: start: 20120201, end: 20120528

REACTIONS (4)
  - ECZEMA [None]
  - PETECHIAE [None]
  - HAEMATOMA [None]
  - PRURITUS [None]
